FAERS Safety Report 12003796 (Version 1)
Quarter: 2016Q1

REPORT INFORMATION
  Report Type: Spontaneous
  Country: AU (occurrence: AU)
  Receive Date: 20160204
  Receipt Date: 20160204
  Transmission Date: 20160526
  Serious: Yes (Life-Threatening)
  Sender: FDA-Public Use
  Company Number: AU-009507513-1602AUS001486

PATIENT
  Age: 82 Year
  Sex: Male
  Weight: 94 kg

DRUGS (5)
  1. CEFTRIAXONE. [Concomitant]
     Active Substance: CEFTRIAXONE
  2. ROCURONIUM BROMIDE. [Suspect]
     Active Substance: ROCURONIUM BROMIDE
     Dosage: 50 MG, UNK
     Dates: start: 20151031, end: 20151031
  3. FENTANYL. [Concomitant]
     Active Substance: FENTANYL
  4. VANCOMYCIN HYDROCHLORIDE. [Suspect]
     Active Substance: VANCOMYCIN HYDROCHLORIDE
     Dosage: 0.8 MG, UNK
     Dates: start: 20151031, end: 20151031
  5. SEVOFLURANE. [Concomitant]
     Active Substance: SEVOFLURANE

REACTIONS (4)
  - White blood cell count increased [Recovered/Resolved]
  - Renal failure [Recovered/Resolved]
  - Hypotension [Recovered/Resolved]
  - Erythema [Recovered/Resolved]

NARRATIVE: CASE EVENT DATE: 20151031
